FAERS Safety Report 19493370 (Version 1)
Quarter: 2021Q3

REPORT INFORMATION
  Report Type: Report from Study
  Country: ZA (occurrence: ZA)
  Receive Date: 20210705
  Receipt Date: 20210705
  Transmission Date: 20211014
  Serious: Yes (Death, Hospitalization, Other)
  Sender: FDA-Public Use
  Company Number: ZA-AMGEN-ZAFSL2021100061

PATIENT
  Age: 68 Year
  Sex: Male

DRUGS (2)
  1. RAUTEVENE [Concomitant]
     Active Substance: IRON SUCROSE
  2. ARANESP [Suspect]
     Active Substance: DARBEPOETIN ALFA
     Indication: END STAGE RENAL DISEASE
     Dosage: 160 MICROGRAM, QWK
     Route: 042
     Dates: start: 20210608, end: 20210627

REACTIONS (1)
  - Cerebrovascular accident [Fatal]

NARRATIVE: CASE EVENT DATE: 20210627
